FAERS Safety Report 4267830-0 (Version None)
Quarter: 2004Q1

REPORT INFORMATION
  Report Type: 
  Country: None (occurrence: None)
  Receive Date: 20040109
  Receipt Date: 20030904
  Transmission Date: 20041129
  Serious: Yes (Other)
  Sender: FDA-Public Use
  Company Number: JP-GLAXOSMITHKLINE-B0309258A

PATIENT
  Age: 24 Year
  Sex: Female
  Weight: 45 kg

DRUGS (3)
  1. PAXIL [Suspect]
     Indication: ANXIETY DISORDER
     Route: 048
     Dates: start: 20020405
  2. ALPRAZOLAM [Concomitant]
     Indication: ANXIETY DISORDER
     Route: 048
     Dates: start: 20020309
  3. POLYCARBOPHIL CALCIUM [Concomitant]
     Indication: DIARRHOEA
     Route: 048
     Dates: start: 20020309

REACTIONS (11)
  - ANGER [None]
  - DISINHIBITION [None]
  - DRUG LEVEL DECREASED [None]
  - DRUG WITHDRAWAL SYNDROME [None]
  - FEAR [None]
  - IMPULSIVE BEHAVIOUR [None]
  - INSOMNIA [None]
  - INTENTIONAL SELF-INJURY [None]
  - IRRITABILITY [None]
  - SELF INJURIOUS BEHAVIOUR [None]
  - SLUGGISHNESS [None]
